FAERS Safety Report 4303013-3 (Version None)
Quarter: 2004Q1

REPORT INFORMATION
  Report Type: 
  Country: None (occurrence: None)
  Receive Date: 20040223
  Receipt Date: 20040223
  Transmission Date: 20041129
  Serious: Yes (Life-Threatening, Hospitalization)
  Sender: FDA-Public Use
  Company Number: None

PATIENT
  Age: 7 Year
  Sex: Male
  Weight: 34.927 kg

DRUGS (1)
  1. PHENOBARBITAL 64.8 MILLIGRAM [Suspect]
     Indication: EPILEPSY
     Dosage: 97.2 MILLIG 2 DAILY ORAL
     Route: 048
     Dates: start: 20020101, end: 20040221

REACTIONS (1)
  - EPILEPSY [None]
